FAERS Safety Report 4712349-3 (Version None)
Quarter: 2005Q3

REPORT INFORMATION
  Report Type: 
  Country: None (occurrence: None)
  Receive Date: 20050712
  Receipt Date: 20050630
  Transmission Date: 20060218
  Serious: Yes (Hospitalization)
  Sender: FDA-Public Use
  Company Number: US-AMGEN-US141266

PATIENT
  Age: 75 Year
  Sex: Female
  Weight: 68.1 kg

DRUGS (4)
  1. PROCRIT [Suspect]
     Indication: ANAEMIA
  2. METOCLOPRAMIDE [Concomitant]
  3. METOPROLOL [Concomitant]
  4. LASIX [Concomitant]

REACTIONS (3)
  - ASTHENIA [None]
  - DIARRHOEA [None]
  - VOMITING [None]
